FAERS Safety Report 8263160-0 (Version None)
Quarter: 2012Q2

REPORT INFORMATION
  Report Type: 
  Country: None (occurrence: None)
  Receive Date: 20120405
  Receipt Date: 20120405
  Transmission Date: 20120825
  Serious: Yes (Hospitalization)
  Sender: FDA-Public Use
  Company Number: DE-BAYER-2012-033087

PATIENT
  Age: 41 Year
  Sex: Female

DRUGS (1)
  1. AVELOX [Suspect]
     Indication: PNEUMONIA
     Dosage: 400 MG, UNK
     Route: 042
     Dates: start: 20120316, end: 20120323

REACTIONS (6)
  - HAEMATURIA [None]
  - MUCOSAL INFLAMMATION [None]
  - APHTHOUS STOMATITIS [None]
  - VAGINAL INFECTION [None]
  - HAEMATOCHEZIA [None]
  - CONJUNCTIVITIS [None]
